FAERS Safety Report 10241614 (Version 1)
Quarter: 2014Q2

REPORT INFORMATION
  Report Type: Spontaneous
  Country: GB (occurrence: GB)
  Receive Date: 20140617
  Receipt Date: 20140617
  Transmission Date: 20141212
  Serious: Yes (Hospitalization, Other)
  Sender: FDA-Public Use
  Company Number: GB-WATSON-2014-13586

PATIENT
  Sex: 0

DRUGS (1)
  1. DEXAMETHASONE (UNKNOWN) [Suspect]
     Indication: PLASMA CELL MYELOMA
     Dosage: 20 MG, DAILY
     Route: 064

REACTIONS (2)
  - Apgar score low [Recovered/Resolved]
  - Foetal exposure during pregnancy [Recovered/Resolved]
